FAERS Safety Report 7177539-1 (Version None)
Quarter: 2010Q4

REPORT INFORMATION
  Report Type: 
  Country: None (occurrence: None)
  Receive Date: 20101123
  Receipt Date: 20100915
  Transmission Date: 20110411
  Serious: No
  Sender: FDA-Public Use
  Company Number: 018873

PATIENT
  Sex: Female
  Weight: 72.5 kg

DRUGS (1)
  1. CIMZIA [Suspect]
     Indication: CROHN'S DISEASE
     Dosage: (2 DF 1X/MONTH, 2 DF = 2 SHOTS SUBCUTANEOUS)
     Route: 058
     Dates: start: 20100101, end: 20100701

REACTIONS (2)
  - COUGH [None]
  - SINUSITIS [None]
